FAERS Safety Report 14516559 (Version 1)
Quarter: 2018Q1

REPORT INFORMATION
  Report Type: Spontaneous
  Country: US (occurrence: US)
  Receive Date: 20180212
  Receipt Date: 20180212
  Transmission Date: 20180509
  Serious: Yes (Other)
  Sender: FDA-Public Use
  Company Number: US-B.I. PHARMACEUTICALS,INC./RIDGEFIELD-2018-BI-006733

PATIENT
  Age: 70 Year
  Sex: Female

DRUGS (1)
  1. PRAXBIND [Suspect]
     Active Substance: IDARUCIZUMAB
     Indication: PROCOAGULANT THERAPY
     Dosage: TWO INTRAVENOUS BOLUSES OF 2.5 G
     Route: 042

REACTIONS (3)
  - Liver abscess [Unknown]
  - Haemorrhage [Unknown]
  - Metrorrhagia [Unknown]
